FAERS Safety Report 9431452 (Version 1)
Quarter: 2013Q3

REPORT INFORMATION
  Report Type: Spontaneous
  Country: JO (occurrence: JO)
  Receive Date: 20130730
  Receipt Date: 20130730
  Transmission Date: 20140515
  Serious: Yes (Other)
  Sender: FDA-Public Use
  Company Number: JO-BAYER-2013-089792

PATIENT
  Age: 62 Year
  Sex: Male
  Weight: 110 kg

DRUGS (3)
  1. LEVITRA [Suspect]
  2. ASPIRIN [Suspect]
  3. ANDRIOL [Suspect]
     Dosage: 40 MG, TID

REACTIONS (2)
  - Vitreous haemorrhage [Unknown]
  - Drug interaction [None]
